FAERS Safety Report 6356296-2 (Version None)
Quarter: 2009Q3

REPORT INFORMATION
  Report Type: 
  Country: None (occurrence: None)
  Receive Date: 20090914
  Receipt Date: 20090914
  Transmission Date: 20100115
  Serious: Yes (Other)
  Sender: FDA-Public Use
  Company Number: None

PATIENT
  Sex: Female
  Weight: 117.9352 kg

DRUGS (1)
  1. CYMBALTA [Suspect]
     Indication: MYALGIA
     Dates: start: 20090610, end: 20090903

REACTIONS (6)
  - ABNORMAL DREAMS [None]
  - DRUG WITHDRAWAL SYNDROME [None]
  - MYALGIA [None]
  - STOMATITIS [None]
  - WEIGHT DECREASED [None]
  - WEIGHT INCREASED [None]
